FAERS Safety Report 25160206 (Version 1)
Quarter: 2025Q2

REPORT INFORMATION
  Report Type: Spontaneous
  Country: PL (occurrence: FR)
  Receive Date: 20250404
  Receipt Date: 20250404
  Transmission Date: 20250717
  Serious: Yes (Life-Threatening, Other)
  Sender: MYLAN
  Company Number: None

PATIENT
  Age: 31 Year
  Sex: Female
  Weight: 50 kg

DRUGS (16)
  1. PREGABALIN [Suspect]
     Active Substance: PREGABALIN
     Indication: Product used for unknown indication
     Dates: start: 20210717, end: 20210717
  2. PREGABALIN [Suspect]
     Active Substance: PREGABALIN
     Route: 048
     Dates: start: 20210717, end: 20210717
  3. PREGABALIN [Suspect]
     Active Substance: PREGABALIN
     Route: 048
     Dates: start: 20210717, end: 20210717
  4. PREGABALIN [Suspect]
     Active Substance: PREGABALIN
     Dates: start: 20210717, end: 20210717
  5. ZOLPIDEM [Suspect]
     Active Substance: ZOLPIDEM TARTRATE
     Indication: Product used for unknown indication
  6. ZOLPIDEM [Suspect]
     Active Substance: ZOLPIDEM TARTRATE
     Route: 048
  7. ZOLPIDEM [Suspect]
     Active Substance: ZOLPIDEM TARTRATE
     Route: 048
  8. ZOLPIDEM [Suspect]
     Active Substance: ZOLPIDEM TARTRATE
  9. KETOPROFEN [Suspect]
     Active Substance: KETOPROFEN
     Indication: Product used for unknown indication
  10. KETOPROFEN [Suspect]
     Active Substance: KETOPROFEN
     Route: 048
  11. KETOPROFEN [Suspect]
     Active Substance: KETOPROFEN
     Route: 048
  12. KETOPROFEN [Suspect]
     Active Substance: KETOPROFEN
  13. METAMIZOL [Suspect]
     Active Substance: METAMIZOLE SODIUM
     Indication: Product used for unknown indication
  14. METAMIZOL [Suspect]
     Active Substance: METAMIZOLE SODIUM
     Route: 048
  15. METAMIZOL [Suspect]
     Active Substance: METAMIZOLE SODIUM
     Route: 048
  16. METAMIZOL [Suspect]
     Active Substance: METAMIZOLE SODIUM

REACTIONS (5)
  - Toxicity to various agents [Not Recovered/Not Resolved]
  - Suicide attempt [Not Recovered/Not Resolved]
  - Somnolence [Not Recovered/Not Resolved]
  - Confusional state [Not Recovered/Not Resolved]
  - Drug abuse [Unknown]
